FAERS Safety Report 6523849-8 (Version None)
Quarter: 2009Q4

REPORT INFORMATION
  Report Type: 
  Country: None (occurrence: None)
  Receive Date: 20091230
  Receipt Date: 20091230
  Transmission Date: 20100525
  Serious: No
  Sender: FDA-Public Use
  Company Number: None

PATIENT
  Age: 31 Year
  Sex: Female
  Weight: 53 kg

DRUGS (5)
  1. PRECEDEX [Suspect]
     Indication: SEDATION
     Dosage: 0.4MCG/KG/HR,CONTINUOUS; .2 ML ( 1 DAY)
     Route: 042
     Dates: start: 20091029, end: 20091030
  2. (NAFAMOSTAT MESILATE) [Concomitant]
  3. ULINASTATIN [Concomitant]
  4. BUPRENORPHINE HYDROCHLORIDE [Concomitant]
  5. AMPICILLIN W/SULBACTAM [Concomitant]

REACTIONS (3)
  - ASTHMA [None]
  - PCO2 INCREASED [None]
  - UNEVALUABLE EVENT [None]
